FAERS Safety Report 22149227 (Version 1)
Quarter: 2023Q1

REPORT INFORMATION
  Report Type: Spontaneous
  Country: US (occurrence: US)
  Receive Date: 20230329
  Receipt Date: 20230329
  Transmission Date: 20230418
  Serious: No
  Sender: FDA-Public Use
  Company Number: US-drreddys-SPO/USA/23/0160371

PATIENT
  Age: 70 Year
  Sex: Female

DRUGS (15)
  1. LENALIDOMIDE [Suspect]
     Active Substance: LENALIDOMIDE
     Indication: Plasma cell myeloma
     Dosage: TAKE 1 CAPSULE BY MOUTH EVERY DAY FOR 21 DAYS FOLLOWED BY 7 DAYS OFF
     Route: 048
     Dates: start: 20221116
  2. IMODIUM A-D [Concomitant]
     Active Substance: LOPERAMIDE HYDROCHLORIDE
     Indication: Product used for unknown indication
  3. TYLENOL [Concomitant]
     Active Substance: ACETAMINOPHEN
     Indication: Product used for unknown indication
  4. ALBUTEROL SULFATE [Concomitant]
     Active Substance: ALBUTEROL SULFATE
     Indication: Product used for unknown indication
  5. ALEVE TAB 220MG [Concomitant]
     Indication: Product used for unknown indication
  6. CAMPHOR CRY [Concomitant]
     Indication: Product used for unknown indication
  7. DEXAMETHASON POW [Concomitant]
     Indication: Product used for unknown indication
  8. FLUOCINONIDE CRE 0.1 percent [Concomitant]
     Indication: Product used for unknown indication
  9. LISINOPRIL-H TAB 20-25MG [Concomitant]
     Indication: Product used for unknown indication
  10. MENTHOL CRY [Concomitant]
     Indication: Product used for unknown indication
  11. MULTIVIT-MIN CHE [Concomitant]
     Indication: Product used for unknown indication
  12. PROCHLORPERA SUP 25MG [Concomitant]
     Indication: Product used for unknown indication
  13. SYSTANE GEL 0.4- 0.3 percent [Concomitant]
     Indication: Product used for unknown indication
  14. TURMERIC POW [Concomitant]
     Indication: Product used for unknown indication
  15. VALACYCLOVIR POW [Concomitant]
     Indication: Product used for unknown indication

REACTIONS (1)
  - Fatigue [Not Recovered/Not Resolved]
